FAERS Safety Report 14162776 (Version 2)
Quarter: 2025Q4

REPORT INFORMATION
  Report Type: Spontaneous
  Country: EU (occurrence: None)
  Receive Date: 20171106
  Receipt Date: 20251221
  Transmission Date: 20260117
  Serious: Yes (Other)
  Sender: AUROBINDO
  Company Number: EU-AUROBINDO-AUR-APL-2017-43302

PATIENT
  Age: 43 Year
  Sex: Male
  Weight: 75 kg

DRUGS (15)
  1. VORICONAZOLE [Interacting]
     Active Substance: VORICONAZOLE
     Indication: Product used for unknown indication
     Dosage: 450 MILLIGRAM, ONCE A DAY
  2. VORICONAZOLE [Interacting]
     Active Substance: VORICONAZOLE
     Dosage: 300 MILLIGRAM, TWO TIMES A DAY
  3. VORICONAZOLE [Interacting]
     Active Substance: VORICONAZOLE
     Dosage: 250 MILLIGRAM, TWO TIMES A DAY
     Route: 061
  4. VORICONAZOLE [Interacting]
     Active Substance: VORICONAZOLE
     Dosage: 200 MILLIGRAM, TWO TIMES A DAY
     Route: 061
  5. VORICONAZOLE [Interacting]
     Active Substance: VORICONAZOLE
     Dosage: 100 MILLIGRAM, TWO TIMES A DAY
     Route: 061
  6. HALOPERIDOL [Interacting]
     Active Substance: HALOPERIDOL
     Indication: Hallucination, auditory
     Dosage: 1 MILLIGRAM, 3 TIMES A DAY
     Route: 061
  7. HALOPERIDOL [Interacting]
     Active Substance: HALOPERIDOL
     Dosage: 1 MILLIGRAM, ONCE A DAY
     Route: 061
  8. EMTRICITABINE\TENOFOVIR DISOPROXIL [Concomitant]
     Active Substance: EMTRICITABINE\TENOFOVIR DISOPROXIL
     Indication: Cerebral toxoplasmosis
     Dosage: UNK
     Route: 065
  9. RALTEGRAVIR [Concomitant]
     Active Substance: RALTEGRAVIR
     Indication: Cerebral toxoplasmosis
     Dosage: UNK
     Route: 065
  10. ATOVAQUONE [Concomitant]
     Active Substance: ATOVAQUONE
     Indication: Cerebral toxoplasmosis
     Dosage: UNK
     Route: 065
  11. AZITHROMYCIN [Concomitant]
     Active Substance: AZITHROMYCIN
     Indication: Cerebral toxoplasmosis
     Dosage: UNK
     Route: 065
  12. PANTOPRAZOLE [Concomitant]
     Active Substance: PANTOPRAZOLE
     Indication: Neuropathy peripheral
     Dosage: UNK
     Route: 065
  13. TRAMADOL [Concomitant]
     Active Substance: TRAMADOL
     Indication: Neuropathy peripheral
     Dosage: UNK
     Route: 065
  14. PREGABALIN [Concomitant]
     Active Substance: PREGABALIN
     Indication: Neuropathy peripheral
     Dosage: UNK
     Route: 065
  15. DELORAZEPAM [Concomitant]
     Active Substance: DELORAZEPAM
     Indication: Hallucination, auditory
     Dosage: 1 MILLIGRAM, ONCE A DAY
     Route: 061

REACTIONS (2)
  - Hepatotoxicity [Recovered/Resolved]
  - Drug interaction [Unknown]
